FAERS Safety Report 8049523-7 (Version None)
Quarter: 2012Q1

REPORT INFORMATION
  Report Type: 
  Country: None (occurrence: None)
  Receive Date: 20120117
  Receipt Date: 20120112
  Transmission Date: 20120608
  Serious: Yes (Hospitalization)
  Sender: FDA-Public Use
  Company Number: AU-BAYER-2012-004342

PATIENT
  Age: 37 Year
  Sex: Male

DRUGS (3)
  1. VITAMINS NOS [Concomitant]
  2. VITAMIN B COMPLEX CAP [Concomitant]
  3. NAPROXEN SODIUM [Suspect]
     Indication: PRODUCT USED FOR UNKNOWN INDICATION
     Dosage: UNK
     Dates: start: 20111117

REACTIONS (3)
  - ANAPHYLACTIC REACTION [None]
  - URTICARIA [None]
  - DYSPNOEA [None]
